FAERS Safety Report 11333527 (Version 1)
Quarter: 2015Q3

REPORT INFORMATION
  Report Type: Spontaneous
  Country: US (occurrence: US)
  Receive Date: 20150803
  Receipt Date: 20150803
  Transmission Date: 20151125
  Serious: Yes (Other)
  Sender: FDA-Public Use
  Company Number: US-ELI_LILLY_AND_COMPANY-US200801004364

PATIENT
  Sex: Female
  Weight: 81.63 kg

DRUGS (14)
  1. RISPERDAL [Concomitant]
     Active Substance: RISPERIDONE
     Dates: start: 1998
  2. PAXIL [Concomitant]
     Active Substance: PAROXETINE HYDROCHLORIDE
     Dates: start: 2000
  3. STELAZINE [Concomitant]
     Active Substance: TRIFLUOPERAZINE HYDROCHLORIDE
     Dates: start: 1995
  4. ELAVIL [Concomitant]
     Active Substance: AMITRIPTYLINE HYDROCHLORIDE
     Dates: start: 199905
  5. CLOZARIL [Concomitant]
     Active Substance: CLOZAPINE
     Dates: start: 2000
  6. TRILAFON [Concomitant]
     Active Substance: PERPHENAZINE
     Dates: start: 1988
  7. ZYPREXA [Suspect]
     Active Substance: OLANZAPINE
     Dosage: 10 MG, UNK
     Dates: start: 19990524, end: 20010130
  8. HALDOL [Concomitant]
     Active Substance: HALOPERIDOL
     Dates: start: 1995
  9. HALDOL [Concomitant]
     Active Substance: HALOPERIDOL
     Dates: start: 1998
  10. LITHIUM. [Concomitant]
     Active Substance: LITHIUM
     Dates: start: 2000
  11. NAVANE [Concomitant]
     Active Substance: THIOTHIXENE
     Dates: start: 1995
  12. LITHIUM. [Concomitant]
     Active Substance: LITHIUM
     Dates: start: 1999
  13. PROZAC [Concomitant]
     Active Substance: FLUOXETINE HYDROCHLORIDE
     Dates: start: 1996
  14. PROZAC [Concomitant]
     Active Substance: FLUOXETINE HYDROCHLORIDE
     Dates: start: 2005

REACTIONS (5)
  - Blood cholesterol abnormal [Unknown]
  - Blood triglycerides increased [Unknown]
  - Diabetes mellitus [Not Recovered/Not Resolved]
  - Metabolic disorder [Unknown]
  - Weight increased [Unknown]

NARRATIVE: CASE EVENT DATE: 2000
